FAERS Safety Report 5051241-4 (Version None)
Quarter: 2006Q3

REPORT INFORMATION
  Report Type: 
  Country: None (occurrence: None)
  Receive Date: 20060714
  Receipt Date: 20060608
  Transmission Date: 20061208
  Serious: Yes (Other)
  Sender: FDA-Public Use
  Company Number: PHMT2006CA01338

PATIENT
  Age: 77 Year
  Sex: Male

DRUGS (10)
  1. COMTAN [Suspect]
     Indication: PARKINSON'S DISEASE
     Dosage: 200 MG, TID
     Route: 048
  2. REMERON [Suspect]
     Dosage: 30 MG QD
  3. AVAPRO [Concomitant]
     Dosage: 300 MG QD
  4. COREG [Concomitant]
     Dosage: 25 MG, BID
  5. LASIX [Concomitant]
     Dosage: 20 MG QD
  6. ALDACTONE [Concomitant]
     Dosage: 12.5 MG QD
  7. ASPIRIN [Concomitant]
     Dosage: 81 MG QD
  8. PLAVIX [Concomitant]
     Dosage: 75 MG QD
  9. ATORVASTATIN CALCIUM [Concomitant]
     Dosage: 20 MG QD
  10. SINEMET [Concomitant]
     Dosage: 200/50 TID

REACTIONS (3)
  - DRUG INTERACTION [None]
  - IMPLANTABLE DEFIBRILLATOR MALFUNCTION [None]
  - VENTRICULAR TACHYCARDIA [None]
